FAERS Safety Report 9277205 (Version 1)
Quarter: 2013Q2

REPORT INFORMATION
  Report Type: Report from Study
  Country: ES (occurrence: ES)
  Receive Date: 20130508
  Receipt Date: 20130508
  Transmission Date: 20140414
  Serious: Yes (Hospitalization)
  Sender: FDA-Public Use
  Company Number: ES-ROCHE-1221393

PATIENT
  Age: 75 Year
  Sex: Male

DRUGS (2)
  1. TORASEMIDE [Suspect]
     Indication: PULMONARY HYPERTENSION
     Route: 048
     Dates: start: 2013
  2. SERTRALINE HYDROCHLORIDE [Suspect]
     Indication: DEPRESSION
     Route: 048
     Dates: start: 2013, end: 20130312

REACTIONS (2)
  - Inappropriate antidiuretic hormone secretion [Recovering/Resolving]
  - Hyponatraemia [Recovering/Resolving]
